FAERS Safety Report 17241956 (Version 2)
Quarter: 2020Q1

REPORT INFORMATION
  Report Type: Spontaneous
  Country: JP (occurrence: JP)
  Receive Date: 20200107
  Receipt Date: 20200203
  Transmission Date: 20200409
  Serious: Yes (Hospitalization, Other)
  Sender: FDA-Public Use
  Company Number: NVSJ2019JP006365

PATIENT
  Age: 82 Year
  Sex: Male

DRUGS (1)
  1. NEVANAC [Suspect]
     Active Substance: NEPAFENAC
     Indication: POSTOPERATIVE CARE
     Route: 047

REACTIONS (4)
  - Conjunctivitis [Unknown]
  - Cerebral haemorrhage [Not Recovered/Not Resolved]
  - Cystoid macular oedema [Unknown]
  - Conjunctival hyperaemia [Unknown]
